FAERS Safety Report 9845766 (Version 2)
Quarter: 2014Q1

REPORT INFORMATION
  Report Type: Spontaneous
  Country: US (occurrence: US)
  Receive Date: 20140127
  Receipt Date: 20140228
  Transmission Date: 20141002
  Serious: Yes (Hospitalization)
  Sender: FDA-Public Use
  Company Number: US-PFIZER INC-2014022811

PATIENT
  Sex: 0

DRUGS (1)
  1. PRISTIQ [Suspect]
     Dosage: UNK
     Dates: start: 201307

REACTIONS (7)
  - Road traffic accident [Unknown]
  - Mental disorder [Unknown]
  - Night sweats [Unknown]
  - Nightmare [Unknown]
  - Pain [Unknown]
  - Anxiety [Unknown]
  - Heart rate increased [Unknown]
